FAERS Safety Report 5347224-7 (Version None)
Quarter: 2007Q2

REPORT INFORMATION
  Report Type: 
  Country: None (occurrence: None)
  Receive Date: 20070509
  Receipt Date: 20060328
  Transmission Date: 20071010
  Serious: No
  Sender: FDA-Public Use
  Company Number: 372493

PATIENT
  Sex: Male
  Weight: 82.7 kg

DRUGS (16)
  1. FUZEON [Suspect]
     Indication: DRUG USE FOR UNKNOWN INDICATION
  2. LASIX [Concomitant]
  3. SPIRONOLACTONE [Concomitant]
  4. COREG [Concomitant]
  5. DECA-DURABOLIN [Concomitant]
  6. TESTOSTERONE [Concomitant]
  7. PROZAC [Concomitant]
  8. NORVIR [Concomitant]
  9. VIREAD [Concomitant]
  10. TRIZIVIR [Concomitant]
  11. TIPRANAVIR (TIPRANAVIR) [Concomitant]
  12. KALETRA [Concomitant]
  13. OXANDRIN [Concomitant]
  14. SEPTRA [Concomitant]
  15. ACYCLOVIR [Concomitant]
  16. LISINOPRIL [Concomitant]

REACTIONS (2)
  - INJECTION SITE MASS [None]
  - INJECTION SITE REACTION [None]
